FAERS Safety Report 19141893 (Version 1)
Quarter: 2021Q2

REPORT INFORMATION
  Report Type: Spontaneous
  Country: JP (occurrence: JP)
  Receive Date: 20210415
  Receipt Date: 20210415
  Transmission Date: 20210717
  Serious: Yes (Other)
  Sender: FDA-Public Use
  Company Number: NVSC2021JP083070

PATIENT
  Sex: Female
  Weight: 2.32 kg

DRUGS (19)
  1. MORPHINE [Suspect]
     Active Substance: MORPHINE
     Dosage: MATERNAL DOSE: 90 MG, QD
     Route: 064
  2. MORPHINE [Suspect]
     Active Substance: MORPHINE
     Dosage: MATERNAL DOSE: 150 MG, QD
     Route: 064
  3. DEXAMETHASONE. [Suspect]
     Active Substance: DEXAMETHASONE
     Indication: FOETAL EXPOSURE DURING PREGNANCY
     Dosage: MATERNAL DOSE: 8 MG, QD (EPIDURAL ANAESTHESIA)
     Route: 064
  4. MORPHINE [Suspect]
     Active Substance: MORPHINE
     Indication: FOETAL EXPOSURE DURING PREGNANCY
     Dosage: MATERNAL DOSE: 60 MG, QD (SLOW RELEASING TYPE, AT 27 WEEKS OF GESTATION IN MOTHER)
     Route: 064
  5. MORPHINE [Suspect]
     Active Substance: MORPHINE
     Dosage: MATERNAL DOSE: 10 MG, QD
     Route: 064
  6. MORPHINE [Suspect]
     Active Substance: MORPHINE
     Dosage: MATERNAL DOSE: 60 MG, QD
     Route: 064
  7. MEPIVACAINE [Suspect]
     Active Substance: MEPIVACAINE HYDROCHLORIDE
     Indication: FOETAL EXPOSURE DURING PREGNANCY
     Dosage: MATERNAL DOSE: 0.05 MG, TID
     Route: 064
  8. AMITRIPTYLLINE [Suspect]
     Active Substance: AMITRIPTYLINE
     Dosage: MATERNAL DOSE: 60 MG
     Route: 064
  9. MORPHINE [Suspect]
     Active Substance: MORPHINE
     Dosage: MATERNAL DOSE: 30 MG, QD
     Route: 064
  10. MORPHINE [Suspect]
     Active Substance: MORPHINE
     Dosage: MATERNAL DOSE: 180 MG, QD
     Route: 064
  11. ROPIVACAINE. [Suspect]
     Active Substance: ROPIVACAINE HYDROCHLORIDE
     Indication: FOETAL EXPOSURE DURING PREGNANCY
     Dosage: MATERNAL DOSE: 0.5 ML, QH (EPIDURAL ANAESTHESIA)
     Route: 064
  12. AMITRIPTYLLINE [Suspect]
     Active Substance: AMITRIPTYLINE
     Indication: FOETAL EXPOSURE DURING PREGNANCY
     Dosage: MATERNAL DOSE: 30 MG
     Route: 064
  13. MORPHINE [Suspect]
     Active Substance: MORPHINE
     Dosage: MATERNAL DOSE: 90 MG, QD
     Route: 064
  14. ACETAMINOPHEN. [Suspect]
     Active Substance: ACETAMINOPHEN
     Indication: FOETAL EXPOSURE DURING PREGNANCY
     Dosage: UNK
     Route: 064
  15. PENTAZOCINE [Suspect]
     Active Substance: PENTAZOCINE
     Indication: FOETAL EXPOSURE DURING PREGNANCY
     Dosage: UNK
     Route: 064
  16. MORPHINE [Suspect]
     Active Substance: MORPHINE
     Dosage: MATERNAL DOSE: 120 MG, QD
     Route: 064
  17. FENTANYL. [Suspect]
     Active Substance: FENTANYL
     Dosage: MATERNAL DOSE: UPTO 100 UG, QH
     Route: 064
  18. MORPHINE [Suspect]
     Active Substance: MORPHINE
     Dosage: MATERNAL DOSE: 240 MG, QD (AT 31 WEEKS OF GESTATION IN MOTHER)
     Route: 064
  19. FENTANYL. [Suspect]
     Active Substance: FENTANYL
     Indication: FOETAL EXPOSURE DURING PREGNANCY
     Dosage: MATERNAL DOSE: 75 UG, QH
     Route: 064

REACTIONS (2)
  - Premature baby [Unknown]
  - Foetal exposure during pregnancy [Unknown]
